FAERS Safety Report 4661575-0 (Version None)
Quarter: 2005Q2

REPORT INFORMATION
  Report Type: 
  Country: None (occurrence: None)
  Receive Date: 20050513
  Receipt Date: 20050503
  Transmission Date: 20051028
  Serious: Yes (Hospitalization)
  Sender: FDA-Public Use
  Company Number: GB-MERCK-0505GBR00051

PATIENT
  Age: 50 Year
  Sex: Male

DRUGS (4)
  1. ZETIA [Suspect]
     Route: 048
     Dates: end: 20050209
  2. ZOCOR [Concomitant]
     Route: 065
     Dates: end: 20050209
  3. METFORMIN [Concomitant]
     Route: 065
  4. GLICLAZIDE [Concomitant]
     Route: 065

REACTIONS (3)
  - JAUNDICE [None]
  - LIVER FUNCTION TEST ABNORMAL [None]
  - MALAISE [None]
